FAERS Safety Report 21767442 (Version 1)
Quarter: 2022Q4

REPORT INFORMATION
  Report Type: Spontaneous
  Country: HU (occurrence: HU)
  Receive Date: 20221222
  Receipt Date: 20221222
  Transmission Date: 20230112
  Serious: Yes (Other)
  Sender: FDA-Public Use
  Company Number: HU-AMGEN-HUNSP2022181300

PATIENT
  Sex: Male

DRUGS (1)
  1. ADALIMUMAB [Suspect]
     Active Substance: ADALIMUMAB
     Indication: Inflammatory bowel disease
     Dosage: UNK,DOSAGE1: UNIT=NOT AVAILABLE
     Route: 065

REACTIONS (3)
  - Haematochezia [Unknown]
  - Drug level decreased [Unknown]
  - Off label use [Unknown]
